FAERS Safety Report 19456581 (Version 1)
Quarter: 2021Q2

REPORT INFORMATION
  Report Type: Spontaneous
  Country: CA (occurrence: CA)
  Receive Date: 20210624
  Receipt Date: 20210624
  Transmission Date: 20210717
  Serious: Yes (Life-Threatening, Hospitalization, Other)
  Sender: FDA-Public Use
  Company Number: CA-AUROBINDO-AUR-APL-2021-026389

PATIENT
  Age: 47 Year
  Sex: Male

DRUGS (3)
  1. CBD OIL [Concomitant]
     Active Substance: CANNABIDIOL\HERBALS
     Indication: PRODUCT USED FOR UNKNOWN INDICATION
     Dosage: UNK
     Route: 065
  2. VENLAFAXINE XR [Concomitant]
     Active Substance: VENLAFAXINE HYDROCHLORIDE
     Indication: PRODUCT USED FOR UNKNOWN INDICATION
     Dosage: UNK
     Route: 065
  3. TADALAFIL TABLET [Suspect]
     Active Substance: TADALAFIL
     Indication: ERECTILE DYSFUNCTION
     Dosage: 20 MILLIGRAM, 3 TIMES A DAY
     Route: 048

REACTIONS (5)
  - Intracranial pressure increased [Unknown]
  - Brain oedema [Unknown]
  - Cerebrovascular accident [Unknown]
  - Craniotomy [Unknown]
  - Altered state of consciousness [Unknown]
